FAERS Safety Report 7278415-6 (Version None)
Quarter: 2011Q1

REPORT INFORMATION
  Report Type: 
  Country: None (occurrence: None)
  Receive Date: 20110207
  Receipt Date: 20110131
  Transmission Date: 20110831
  Serious: Yes (Death, Hospitalization)
  Sender: FDA-Public Use
  Company Number: FR-ELI_LILLY_AND_COMPANY-FR201101007355

PATIENT
  Sex: Male

DRUGS (5)
  1. SERESTA [Concomitant]
     Dosage: 50 MG, EVERY 4 HRS
     Route: 048
  2. NORDAZ [Concomitant]
     Dosage: 15 MG, DAILY (1/D)
     Route: 048
  3. NOCTAMIDE [Concomitant]
     Dosage: 2 MG, DAILY (1/D)
     Route: 048
  4. ZYPREXA [Suspect]
     Indication: BIPOLAR DISORDER
     Dosage: 10 MG, 2/D
     Route: 048
  5. AOTAL [Concomitant]
     Dosage: 2 D/F, 3/D
     Route: 048

REACTIONS (3)
  - HOSPITALISATION [None]
  - COMPLETED SUICIDE [None]
  - CARDIO-RESPIRATORY ARREST [None]
